FAERS Safety Report 5978188-0 (Version None)
Quarter: 2008Q4

REPORT INFORMATION
  Report Type: 
  Country: None (occurrence: None)
  Receive Date: 20081204
  Receipt Date: 20081119
  Transmission Date: 20090506
  Serious: Yes (Hospitalization)
  Sender: FDA-Public Use
  Company Number: US-KINGPHARMUSA00001-K200801202

PATIENT
  Age: 80 Year
  Sex: Male

DRUGS (2)
  1. ALTACE [Suspect]
     Indication: CARDIOVASCULAR DISORDER
     Dosage: 5 MG, QD
     Route: 048
     Dates: start: 20080917, end: 20080919
  2. HYPREN PLUS [Suspect]
     Indication: CARDIOVASCULAR DISORDER
     Dosage: UNK, UNK
     Route: 048

REACTIONS (4)
  - CIRCULATORY COLLAPSE [None]
  - SENSATION OF FOREIGN BODY [None]
  - SPEECH DISORDER [None]
  - SWOLLEN TONGUE [None]
